FAERS Safety Report 18539124 (Version 1)
Quarter: 2020Q4

REPORT INFORMATION
  Report Type: Spontaneous
  Country: US (occurrence: US)
  Receive Date: 20201123
  Receipt Date: 20201123
  Transmission Date: 20210114
  Serious: Yes (Other)
  Sender: FDA-Public Use
  Company Number: None

PATIENT
  Sex: Female

DRUGS (2)
  1. TRAVATAN Z [Suspect]
     Active Substance: TRAVOPROST
  2. LATANOPROST. [Suspect]
     Active Substance: LATANOPROST

REACTIONS (2)
  - Drug ineffective [None]
  - Eye irritation [None]
